FAERS Safety Report 23575208 (Version 1)
Quarter: 2024Q1

REPORT INFORMATION
  Report Type: Spontaneous
  Country: GB (occurrence: GB)
  Receive Date: 20240228
  Receipt Date: 20240228
  Transmission Date: 20240410
  Serious: Yes (Disabling, Other)
  Sender: FDA-Public Use
  Company Number: None

PATIENT
  Age: 24 Year
  Sex: Female
  Weight: 54 kg

DRUGS (1)
  1. LAMOTRIGINE [Suspect]
     Active Substance: LAMOTRIGINE
     Indication: Anxiety
     Dosage: 50 MILLIGRAM, BID
     Route: 065
     Dates: start: 20230601

REACTIONS (4)
  - Dyspnoea [Not Recovered/Not Resolved]
  - Mood altered [Recovered/Resolved]
  - Drug dependence [Unknown]
  - Emotional distress [Unknown]

NARRATIVE: CASE EVENT DATE: 20230601
